FAERS Safety Report 5535510-7 (Version None)
Quarter: 2007Q4

REPORT INFORMATION
  Report Type: 
  Country: None (occurrence: None)
  Receive Date: 20071203
  Receipt Date: 20071203
  Transmission Date: 20080405
  Serious: Yes (Hospitalization, Other)
  Sender: FDA-Public Use
  Company Number: None

PATIENT
  Age: 35 Year
  Sex: Female
  Weight: 63.5036 kg

DRUGS (2)
  1. DOXYCYCLINE [Suspect]
     Indication: BABESIOSIS
     Dosage: 100 THEN LOWERED TO 50   ONCE A DAY  PO
     Route: 048
     Dates: start: 20071108, end: 20071120
  2. DOXYCYCLINE [Suspect]
     Indication: INFECTION
     Dosage: 100 THEN LOWERED TO 50   ONCE A DAY  PO
     Route: 048
     Dates: start: 20071108, end: 20071120

REACTIONS (44)
  - ABDOMINAL PAIN [None]
  - ABDOMINAL PAIN UPPER [None]
  - ANOREXIA [None]
  - ANXIETY [None]
  - BURN OESOPHAGEAL [None]
  - CANDIDIASIS [None]
  - CHILLS [None]
  - CONFUSIONAL STATE [None]
  - DEHYDRATION [None]
  - DEPRESSION [None]
  - DISTURBANCE IN ATTENTION [None]
  - DROOLING [None]
  - DRY EYE [None]
  - DRY MOUTH [None]
  - DRY SKIN [None]
  - ERYTHEMA [None]
  - EYE PAIN [None]
  - FATIGUE [None]
  - FEAR [None]
  - HEPATOCELLULAR DAMAGE [None]
  - LETHARGY [None]
  - MEMORY IMPAIRMENT [None]
  - MOUTH ULCERATION [None]
  - MUCOSAL DRYNESS [None]
  - MUSCULAR WEAKNESS [None]
  - OCULAR HYPERAEMIA [None]
  - OESOPHAGEAL OEDEMA [None]
  - ORAL DISORDER [None]
  - ORAL INTAKE REDUCED [None]
  - PAIN [None]
  - PHARYNGEAL OEDEMA [None]
  - PHARYNGOLARYNGEAL PAIN [None]
  - PRURITUS [None]
  - RASH [None]
  - RENAL DISORDER [None]
  - SPEECH DISORDER [None]
  - STARING [None]
  - STARVATION [None]
  - STOMATITIS [None]
  - STUPOR [None]
  - SWOLLEN TONGUE [None]
  - TEMPERATURE INTOLERANCE [None]
  - TREMOR [None]
  - WEIGHT DECREASED [None]
